FAERS Safety Report 25671193 (Version 1)
Quarter: 2025Q3

REPORT INFORMATION
  Report Type: Spontaneous
  Country: US (occurrence: US)
  Receive Date: 20250812
  Receipt Date: 20250812
  Transmission Date: 20251020
  Serious: No
  Sender: JOHNSON AND JOHNSON
  Company Number: US-JNJFOC-20250810287

PATIENT
  Age: 4 Decade
  Sex: Male

DRUGS (1)
  1. ELMIRON [Suspect]
     Active Substance: PENTOSAN POLYSULFATE SODIUM
     Indication: Product used for unknown indication
     Route: 048
     Dates: start: 1998, end: 2021

REACTIONS (1)
  - Off label use [Unknown]

NARRATIVE: CASE EVENT DATE: 19980101
